FAERS Safety Report 20757632 (Version 4)
Quarter: 2025Q3

REPORT INFORMATION
  Report Type: Spontaneous
  Country: US (occurrence: US)
  Receive Date: 20220427
  Receipt Date: 20250811
  Transmission Date: 20251020
  Serious: No
  Sender: PFIZER
  Company Number: US-PFIZER INC-202101798363

PATIENT
  Age: 62 Year
  Sex: Female

DRUGS (18)
  1. XELJANZ XR [Suspect]
     Active Substance: TOFACITINIB CITRATE
     Dosage: 11 MG, DAILY
     Route: 048
     Dates: start: 20210921
  2. DULOXETINE [Concomitant]
     Active Substance: DULOXETINE
  3. CEFPODOXIME [Concomitant]
     Active Substance: CEFPODOXIME
  4. SULFAMETHOXAZOLE\TRIMETHOPRIM [Concomitant]
     Active Substance: SULFAMETHOXAZOLE\TRIMETHOPRIM
  5. PHENAZOPYRIDINE [Concomitant]
     Active Substance: PHENAZOPYRIDINE
  6. GLATIRAMER ACETATE [Concomitant]
     Active Substance: GLATIRAMER ACETATE
  7. HYDROXYCHLOROQUINE [Concomitant]
     Active Substance: HYDROXYCHLOROQUINE
  8. ESZOPICLONE [Concomitant]
     Active Substance: ESZOPICLONE
  9. COLESTIPOL [Concomitant]
     Active Substance: COLESTIPOL
  10. BUPROPION XR 150 ADCO [Concomitant]
  11. SYNTHROID [Concomitant]
     Active Substance: LEVOTHYROXINE SODIUM
  12. MUPIROCIN [Concomitant]
     Active Substance: MUPIROCIN
  13. COPAXONE [Concomitant]
     Active Substance: GLATIRAMER ACETATE
  14. LISINOPRIL [Concomitant]
     Active Substance: LISINOPRIL
  15. MAGNESIUM [Concomitant]
     Active Substance: MAGNESIUM
  16. VITAMIN C [Concomitant]
     Active Substance: ASCORBIC ACID
  17. VITAMIN D3 [Concomitant]
     Active Substance: CHOLECALCIFEROL
  18. ZINC [Concomitant]
     Active Substance: ZINC

REACTIONS (4)
  - Hair texture abnormal [Not Recovered/Not Resolved]
  - Endocrine disorder [Not Recovered/Not Resolved]
  - Urinary tract infection [Recovered/Resolved]
  - Heat exhaustion [Not Recovered/Not Resolved]

NARRATIVE: CASE EVENT DATE: 20211001
